FAERS Safety Report 23572441 (Version 1)
Quarter: 2024Q1

REPORT INFORMATION
  Report Type: Spontaneous
  Country: US (occurrence: US)
  Receive Date: 20240227
  Receipt Date: 20240227
  Transmission Date: 20240410
  Serious: No
  Sender: FDA-Public Use
  Company Number: US-009507513-2402USA003651

PATIENT
  Age: 49 Year
  Sex: Male
  Weight: 66.1 kg

DRUGS (6)
  1. NOXAFIL [Suspect]
     Active Substance: POSACONAZOLE
     Indication: Histoplasmosis disseminated
     Route: 042
  2. NOXAFIL [Suspect]
     Active Substance: POSACONAZOLE
     Indication: Mycotic endophthalmitis
  3. RIFAMPIN [Concomitant]
     Active Substance: RIFAMPIN
     Route: 042
  4. MOXIFLOXACIN [Concomitant]
     Active Substance: MOXIFLOXACIN
  5. AMIKACIN [Concomitant]
     Active Substance: AMIKACIN
  6. LINEZOLID [Concomitant]
     Active Substance: LINEZOLID

REACTIONS (1)
  - Product use in unapproved indication [Unknown]
